FAERS Safety Report 10283449 (Version 1)
Quarter: 2014Q3

REPORT INFORMATION
  Report Type: Spontaneous
  Country: US (occurrence: None)
  Receive Date: 20140702
  Receipt Date: 20140702
  Transmission Date: 20150326
  Serious: Yes (Hospitalization, Other)
  Sender: FDA-Public Use
  Company Number: 2014CDR00002

PATIENT
  Age: 30 Year
  Sex: Female

DRUGS (4)
  1. METHIMAZOLE. [Suspect]
     Active Substance: METHIMAZOLE
     Indication: BASEDOW^S DISEASE
  2. PROPYTHIOURACIL [Concomitant]
  3. METHIMAZOLE. [Suspect]
     Active Substance: METHIMAZOLE
     Indication: HYPERTHYROIDISM
  4. PROPRANOLOL [Concomitant]
     Active Substance: PROPRANOLOL\PROPRANOLOL HYDROCHLORIDE

REACTIONS (7)
  - Basedow^s disease [None]
  - Condition aggravated [None]
  - Hypersensitivity [None]
  - Angioedema [None]
  - Dyspnoea [None]
  - Urticaria [None]
  - Hypocalcaemia [None]
